FAERS Safety Report 5241005-0 (Version None)
Quarter: 2007Q1

REPORT INFORMATION
  Report Type: 
  Country: None (occurrence: None)
  Receive Date: 20070219
  Receipt Date: 20070213
  Transmission Date: 20070707
  Serious: Yes (Death, Other)
  Sender: FDA-Public Use
  Company Number: IE-ABBOTT-07P-229-0356223-00

PATIENT
  Sex: Male

DRUGS (1)
  1. KLACID [Suspect]
     Indication: LOWER RESPIRATORY TRACT INFECTION

REACTIONS (5)
  - COMPLETED SUICIDE [None]
  - DEPRESSED MOOD [None]
  - HALLUCINATION [None]
  - MOUTH ULCERATION [None]
  - NASAL OEDEMA [None]
